FAERS Safety Report 8563292-3 (Version None)
Quarter: 2012Q3

REPORT INFORMATION
  Report Type: 
  Country: None (occurrence: None)
  Receive Date: 20120802
  Receipt Date: 20120727
  Transmission Date: 20120928
  Serious: No
  Sender: FDA-Public Use
  Company Number: US-AMGEN-USASP2012047173

PATIENT
  Age: 79 Year
  Sex: Female

DRUGS (3)
  1. METHOTREXATE [Concomitant]
     Dosage: UNK
  2. SULFASALAZINE [Concomitant]
     Dosage: UNK
  3. ENBREL [Suspect]
     Indication: RHEUMATOID ARTHRITIS
     Dosage: 50 MG, QWK
     Dates: start: 20120503

REACTIONS (6)
  - POLLAKIURIA [None]
  - DRUG INEFFECTIVE [None]
  - URINE COLOUR ABNORMAL [None]
  - WEIGHT INCREASED [None]
  - POOR QUALITY SLEEP [None]
  - MALAISE [None]
